FAERS Safety Report 8181029-7 (Version None)
Quarter: 2012Q1

REPORT INFORMATION
  Report Type: 
  Country: None (occurrence: None)
  Receive Date: 20120302
  Receipt Date: 20120224
  Transmission Date: 20120608
  Serious: Yes (Other)
  Sender: FDA-Public Use
  Company Number: US-PFIZER INC-2012050894

PATIENT
  Sex: Male

DRUGS (1)
  1. VIAGRA [Suspect]
     Dosage: UNK

REACTIONS (5)
  - HEPATIC FAILURE [None]
  - LIVER DISORDER [None]
  - DISCOMFORT [None]
  - SWELLING [None]
  - ABDOMINAL DISTENSION [None]
